FAERS Safety Report 9555555 (Version 6)
Quarter: 2013Q4

REPORT INFORMATION
  Report Type: Report from Study
  Country: US (occurrence: US)
  Receive Date: 20130926
  Receipt Date: 20131126
  Transmission Date: 20140711
  Serious: Yes (Hospitalization)
  Sender: FDA-Public Use
  Company Number: US-BAYER-2013-115077

PATIENT
  Age: 77 Year
  Sex: Male
  Weight: 122.3 kg

DRUGS (24)
  1. ALPHARADIN [Suspect]
     Indication: PROSTATE CANCER METASTATIC
     Dosage: 10.88 ML X1 DOSE
     Route: 042
     Dates: start: 20130501, end: 20130501
  2. ALPHARADIN [Suspect]
     Indication: PROSTATE CANCER METASTATIC
     Dosage: 11.1 ML X1 DOSE
     Route: 042
     Dates: start: 20130531, end: 20130531
  3. ALPHARADIN [Suspect]
     Indication: PROSTATE CANCER METASTATIC
     Dosage: 10.6 ML X1 DOSE
     Route: 042
     Dates: start: 20130625, end: 20130625
  4. ALPHARADIN [Suspect]
     Indication: PROSTATE CANCER METASTATIC
     Dosage: 7.4 ML X1 DOSE
     Route: 042
     Dates: start: 20130719, end: 20130719
  5. ALPHARADIN [Suspect]
     Indication: PROSTATE CANCER METASTATIC
     Dosage: 10.4 ML X1 DOSE
     Route: 042
     Dates: start: 20130814, end: 20130814
  6. ALPHARADIN [Suspect]
     Indication: PROSTATE CANCER METASTATIC
     Dosage: 6.7 ML X1 DOSE
     Route: 042
     Dates: start: 20130911, end: 20130911
  7. FLUTAMIDE [Concomitant]
     Indication: PROSTATE CANCER
     Dosage: TOTAL DAILY DOSE 750 MG
     Route: 048
     Dates: start: 20130322
  8. FERROUS SULFATE [Concomitant]
     Indication: IRON DEFICIENCY
     Dosage: 325 MG, BID
     Route: 048
     Dates: start: 20130322
  9. FUROSEMIDE [FUROSEMIDE] [Concomitant]
     Dosage: 20 MG
  10. ISOSORBIDE [ISOSORBIDE MONONITRATE] [Concomitant]
     Indication: PERIPHERAL VASCULAR DISORDER
     Dosage: TOTAL DAILY DOSE 30 MG
     Route: 048
     Dates: start: 20130925
  11. KLOR-CON M20 [Concomitant]
     Indication: HYPOKALAEMIA
     Dosage: TOTAL DAILY DOSE 40 MEQ
     Route: 048
     Dates: start: 20121207
  12. MAXZIDE [Concomitant]
     Dosage: 75 MG-50 MG
  13. NYSTATIN [Concomitant]
     Dosage: 100000 UNIT/G
  14. SPIRIVA [Concomitant]
     Indication: CHRONIC OBSTRUCTIVE PULMONARY DISEASE
     Dosage: TOTAL DAILY DOSE 18 MCG
     Route: 048
     Dates: start: 20120828
  15. SYMBICORT [Concomitant]
     Indication: CHRONIC OBSTRUCTIVE PULMONARY DISEASE
     Dosage: 160 MCG-4.5 MCG/ACTUATION HFA AEROSOL  INHALER
     Route: 055
     Dates: start: 20120828
  16. VITAMIN D3 [Concomitant]
     Indication: VITAMIN D DECREASED
     Dosage: TOTAL DAILY DOSE 2000 UNIT
     Route: 048
     Dates: start: 20130222
  17. CALCIUM WITH VITAMIN D [Concomitant]
     Indication: SUPPLEMENTATION THERAPY
     Dosage: TOTAL DAILY DOSE 1200 MG
     Route: 048
     Dates: start: 20111015
  18. COUMADIN [Concomitant]
     Indication: DEEP VEIN THROMBOSIS
     Dosage: TOTAL DAILY DOSE 5 MG
     Route: 048
     Dates: start: 20121126, end: 20131028
  19. TYLENOL [PARACETAMOL] [Concomitant]
     Indication: BONE PAIN
     Dosage: TOTAL DAILY DOSE 1000 MG
     Route: 048
     Dates: start: 20130102
  20. CALCIUM CARBONATE [Concomitant]
     Dosage: 600 MG, BID
     Route: 048
  21. IMDUR [Concomitant]
     Dosage: 30 MG, DAILY
     Route: 048
  22. PROMETHAZINE [PROMETHAZINE] [Concomitant]
     Dosage: 25 MG, BID
     Route: 048
  23. POTASSIUM CHLORIDE [Concomitant]
     Dosage: 10 MEQ, BID
     Route: 048
  24. MIRALAX [Concomitant]
     Indication: CONSTIPATION

REACTIONS (5)
  - Anaemia [Recovered/Resolved]
  - Hypovolaemia [Recovered/Resolved]
  - Renal failure acute [Recovered/Resolved]
  - Toxicity to various agents [Not Recovered/Not Resolved]
  - Diarrhoea [None]
